FAERS Safety Report 7074347-7 (Version None)
Quarter: 2010Q4

REPORT INFORMATION
  Report Type: 
  Country: None (occurrence: None)
  Receive Date: 20101029
  Receipt Date: 20101015
  Transmission Date: 20110411
  Serious: Yes (Other)
  Sender: FDA-Public Use
  Company Number: GB-BAUSCH-2010BL005865

PATIENT
  Age: 31 Year
  Sex: Female

DRUGS (5)
  1. PREDNISOLONE [Suspect]
     Indication: THROMBOCYTOPENIC PURPURA
     Route: 064
  2. PREDNISOLONE [Suspect]
     Indication: PRE-ECLAMPSIA
     Route: 064
  3. AZATHIOPRINE [Suspect]
     Indication: TRANSPLANT REJECTION
     Route: 064
  4. MYCOPHENOLATE MOFETIL [Suspect]
     Indication: TRANSPLANT REJECTION
     Route: 064
  5. TACROLIMUS [Suspect]
     Indication: PRE-ECLAMPSIA
     Route: 064

REACTIONS (2)
  - DRUG EXPOSURE DURING PREGNANCY [None]
  - INTRA-UTERINE DEATH [None]
